FAERS Safety Report 8834833 (Version 1)
Quarter: 2012Q4

REPORT INFORMATION
  Report Type: 
  Country: ZA (occurrence: ZA)
  Receive Date: 20121010
  Receipt Date: 20121010
  Transmission Date: 20130627
  Serious: Yes (Other)
  Sender: FDA-Public Use
  Company Number: ZA-GLAXOSMITHKLINE-B0836252A

PATIENT
  Age: 66 Year
  Sex: Female

DRUGS (1)
  1. ZINNAT [Suspect]
     Indication: UPPER RESPIRATORY TRACT INFECTION
     Dosage: 250MG Single dose
     Route: 048
     Dates: start: 20120825, end: 20120825

REACTIONS (5)
  - Pruritus generalised [Recovered/Resolved]
  - Erythema [Recovered/Resolved]
  - Tremor [Recovered/Resolved]
  - Pharyngeal oedema [Recovered/Resolved]
  - Shock [Recovered/Resolved]
